FAERS Safety Report 6215683-3 (Version None)
Quarter: 2009Q2

REPORT INFORMATION
  Report Type: 
  Country: None (occurrence: None)
  Receive Date: 20090605
  Receipt Date: 20090505
  Transmission Date: 20091009
  Serious: No
  Sender: FDA-Public Use
  Company Number: US-BAYER-200914986NA

PATIENT
  Age: 69 Year
  Sex: Male

DRUGS (1)
  1. SOTALOL HCL [Suspect]
     Indication: DRUG USE FOR UNKNOWN INDICATION
     Dosage: TOTAL DAILY DOSE: 240 MG

REACTIONS (1)
  - NASAL CONGESTION [None]
